APPROVED DRUG PRODUCT: ELUCIREM
Active Ingredient: GADOPICLENOL
Strength: 14.553GM/30ML (485.1MG/ML)
Dosage Form/Route: SOLUTION;INTRAVENOUS
Application: N216986 | Product #005
Applicant: GUERBET
Approved: Sep 21, 2022 | RLD: Yes | RS: Yes | Type: RX

PATENTS:
Patent 8114863 | Expires: Sep 19, 2028
Patent 11590246 | Expires: Jan 17, 2040
Patent 10973934 | Expires: Aug 6, 2039

EXCLUSIVITY:
Code: NCE | Date: Sep 21, 2027